FAERS Safety Report 6811070-5 (Version None)
Quarter: 2010Q2

REPORT INFORMATION
  Report Type: 
  Country: None (occurrence: None)
  Receive Date: 20100630
  Receipt Date: 20100624
  Transmission Date: 20101027
  Serious: Yes (Other)
  Sender: FDA-Public Use
  Company Number: FR-AMGEN-KDL404810

PATIENT
  Age: 94 Year
  Sex: Female

DRUGS (3)
  1. ARANESP [Suspect]
     Indication: MYELODYSPLASTIC SYNDROME
  2. GRANOCYTE [Concomitant]
  3. REVLIMID [Concomitant]
     Route: 048

REACTIONS (1)
  - THERAPEUTIC RESPONSE DECREASED [None]
